FAERS Safety Report 8410525 (Version 2)
Quarter: 2013Q2

REPORT INFORMATION
  Report Type: Spontaneous
  Country: US (occurrence: None)
  Receive Date: 20111227
  Receipt Date: 20120426
  Transmission Date: 20140414
  Serious: No
  Sender: FDA-Public Use
  Company Number: PHEH2011US04337

PATIENT
  Age: 57 Year
  Sex: Female
  Weight: 113.4 kg

DRUGS (4)
  1. GILENYA [Suspect]
     Dosage: 0.5 MG, QD, ORAL
     Route: 048
  2. GEODON (ZIPRASIDONE HYDROCHLORIDE) [Concomitant]
     Dosage: 0.5 MG, QD, ORAL
  3. DEPAKOTE (VALPROATE SEMISODIUM) [Concomitant]
  4. EFEXOR XR (VENLAFAXINE) [Concomitant]

REACTIONS (4)
  - NAUSEA [None]
  - Fat intolerance [None]
  - Flatulence [None]
  - Overdose [None]
